FAERS Safety Report 6145612-2 (Version None)
Quarter: 2009Q2

REPORT INFORMATION
  Report Type: 
  Country: None (occurrence: None)
  Receive Date: 20090407
  Receipt Date: 20090326
  Transmission Date: 20091009
  Serious: Yes (Other)
  Sender: FDA-Public Use
  Company Number: JP-PFIZER INC-2009185603

PATIENT

DRUGS (5)
  1. HALCION [Suspect]
     Indication: INSOMNIA
     Dosage: 0.25 MG, 1X/DAY
     Route: 048
     Dates: start: 20060101
  2. TAKEPRON [Concomitant]
     Dosage: UNK
     Route: 048
     Dates: start: 20060101
  3. THYRADIN S [Concomitant]
     Dosage: UNK
     Route: 048
     Dates: start: 20060101
  4. ALENDRONATE SODIUM [Concomitant]
     Dosage: UNK
     Route: 048
     Dates: start: 20080301
  5. CRAVIT [Concomitant]
     Dosage: UNK
     Route: 048
     Dates: start: 20090316, end: 20090319

REACTIONS (5)
  - DELIRIUM [None]
  - DEPRESSED LEVEL OF CONSCIOUSNESS [None]
  - DYSARTHRIA [None]
  - INSOMNIA [None]
  - OVERDOSE [None]
